FAERS Safety Report 9617009 (Version 2)
Quarter: 2014Q2

REPORT INFORMATION
  Report Type: Spontaneous
  Country: US (occurrence: US)
  Receive Date: 20131011
  Receipt Date: 20140522
  Transmission Date: 20141212
  Serious: Yes (Hospitalization, Other)
  Sender: FDA-Public Use
  Company Number: CHPA2013US015468

PATIENT
  Age: 86 Year
  Sex: Female

DRUGS (2)
  1. ASCRIPTIN BUFFERED REG STRENGTH TABLETS [Suspect]
     Indication: BACK PAIN
     Dosage: 2-4 AS NEEDED, PRN
  2. ASCRIPTIN BUFFERED REG STRENGTH TABLETS [Suspect]
     Indication: OFF LABEL USE

REACTIONS (7)
  - Pneumonia [Recovered/Resolved]
  - Pneumothorax [Recovering/Resolving]
  - Cystitis [Recovering/Resolving]
  - Lower limb fracture [Recovered/Resolved]
  - Posture abnormal [Not Recovered/Not Resolved]
  - Incorrect dose administered [Unknown]
  - Drug ineffective [Unknown]
